FAERS Safety Report 5878806-1 (Version None)
Quarter: 2008Q3

REPORT INFORMATION
  Report Type: 
  Country: None (occurrence: None)
  Receive Date: 20080910
  Receipt Date: 20080827
  Transmission Date: 20090109
  Serious: Yes (Hospitalization)
  Sender: FDA-Public Use
  Company Number: 2008BI022212

PATIENT
  Age: 42 Year
  Sex: Male

DRUGS (1)
  1. TYSABRI [Suspect]
     Indication: MULTIPLE SCLEROSIS
     Dosage: 300 MG; QM; IV
     Route: 042

REACTIONS (10)
  - BRAIN MASS [None]
  - BRAIN OEDEMA [None]
  - COMPLEX PARTIAL SEIZURES [None]
  - CONDITION AGGRAVATED [None]
  - DYSARTHRIA [None]
  - GAIT DISTURBANCE [None]
  - HEMIPARESIS [None]
  - INFECTION [None]
  - MULTIPLE SCLEROSIS [None]
  - NECROSIS [None]
